FAERS Safety Report 9196835 (Version 2)
Quarter: 2013Q2

REPORT INFORMATION
  Report Type: Spontaneous
  Country: BR (occurrence: BR)
  Receive Date: 20130328
  Receipt Date: 20130401
  Transmission Date: 20140414
  Serious: Yes (Other)
  Sender: FDA-Public Use
  Company Number: PHHY2013BR029741

PATIENT
  Sex: 0

DRUGS (1)
  1. RITALINA [Suspect]
     Dosage: 10 MG, UNK

REACTIONS (2)
  - Attention deficit/hyperactivity disorder [Unknown]
  - Panic disorder [Unknown]
